FAERS Safety Report 25868962 (Version 2)
Quarter: 2025Q4

REPORT INFORMATION
  Report Type: Report from Study
  Country: EU (occurrence: EU)
  Receive Date: 20251001
  Receipt Date: 20251028
  Transmission Date: 20260119
  Serious: No
  Sender: Day One Biopharmaceuticals
  Company Number: EU-IPSEN Group, Research and Development-2025-23836

PATIENT

DRUGS (8)
  1. OJEMDA [Suspect]
     Active Substance: TOVORAFENIB
     Indication: Optic glioma
     Dosage: 600 MILLIGRAM
     Dates: start: 20250218
  2. OJEMDA [Suspect]
     Active Substance: TOVORAFENIB
     Dosage: WEEKLY
  3. OJEMDA [Suspect]
     Active Substance: TOVORAFENIB
     Dosage: 5 TABLETS (TOTAL 500 MG) ONCE WEEKLY, TAKEN ON TUESDAYS
  4. MINIRIN [Concomitant]
     Active Substance: DESMOPRESSIN ACETATE
     Dosage: DOSAGE: 150?G (MORNING), 90?G (MIDDAY), 270?G (EVENING)
  5. KEPPRA [Concomitant]
     Active Substance: LEVETIRACETAM
     Dosage: DOSAGE: 250 MG IN THE EVENING
  6. DUPHASTON [Concomitant]
     Active Substance: DYDROGESTERONE
     Dosage: DOSAGE: 2 TABLETS PER DAY FROM THE 1ST TO THE 12TH OF EACH MONTH
  7. ESTRADIOL [Concomitant]
     Active Substance: ESTRADIOL
     Dosage: DOSAGE: 2 PUMPS PER DAY (1 APPLICATION OF 2 PRESSIONS PER DAY)
  8. LACRYFLUID [Concomitant]

REACTIONS (6)
  - Ocular rosacea [Recovered/Resolved with Sequelae]
  - Asthenia [Recovering/Resolving]
  - Xerosis [Unknown]
  - Hair colour changes [Unknown]
  - Decreased appetite [Unknown]
  - Rash [Not Recovered/Not Resolved]

NARRATIVE: CASE EVENT DATE: 20250218
